FAERS Safety Report 21172663 (Version 1)
Quarter: 2022Q3

REPORT INFORMATION
  Report Type: Report from Study
  Country: AU (occurrence: AU)
  Receive Date: 20220804
  Receipt Date: 20220804
  Transmission Date: 20221026
  Serious: Yes (Hospitalization)
  Sender: FDA-Public Use
  Company Number: AU-PFIZER INC-PV202200035356

PATIENT
  Age: 25 Year
  Sex: Male
  Weight: 73 kg

DRUGS (15)
  1. PALBOCICLIB [Suspect]
     Active Substance: PALBOCICLIB
     Dosage: 75 MG, 224 DAYS - CYCLE 6
     Route: 048
     Dates: start: 20211216, end: 20220728
  2. AVELUMAB [Suspect]
     Active Substance: AVELUMAB
     Indication: Lung neoplasm malignant
     Dosage: 685 MG, 184 DAYS - CYC;E 6
     Route: 042
     Dates: start: 20220125, end: 20220728
  3. LEVETIRACETAM [Concomitant]
     Active Substance: LEVETIRACETAM
     Indication: Chronic disease
     Dosage: 1000 MG, 1X/DAY
     Route: 048
     Dates: start: 20210413
  4. OXYCODONE [Concomitant]
     Active Substance: OXYCODONE
     Indication: Drug therapy
     Dosage: 5 UG, AS NEEDED
     Route: 048
     Dates: start: 20210601
  5. ACETAMINOPHEN [Concomitant]
     Active Substance: ACETAMINOPHEN
     Indication: Drug therapy
     Dosage: 500 MG, 2X/DAY
     Route: 048
     Dates: start: 20210601
  6. METOCLOPRAMIDE [Concomitant]
     Active Substance: METOCLOPRAMIDE
     Indication: Drug therapy
     Dosage: 10 MG, 2X/DAY
     Route: 048
     Dates: start: 20210601
  7. NALOXONE HYDROCHLORIDE\OXYCODONE HYDROCHLORIDE [Concomitant]
     Active Substance: NALOXONE HYDROCHLORIDE\OXYCODONE HYDROCHLORIDE
     Indication: Drug therapy
     Dosage: 1.25 MG, 2X/DAY
     Route: 048
     Dates: start: 20210601
  8. POLYETHYLENE GLYCOL 3350\POTASSIUM CHLORIDE\SODIUM BICARBONATE\SODIUM [Concomitant]
     Active Substance: POLYETHYLENE GLYCOL 3350\POTASSIUM CHLORIDE\SODIUM BICARBONATE\SODIUM CHLORIDE
     Indication: Drug therapy
     Dosage: 1 SACHET,  2X/DAY
     Route: 048
     Dates: start: 20220601
  9. DOCUSATE [Concomitant]
     Active Substance: DOCUSATE
     Indication: Drug therapy
     Dosage: 50 MG, 2 TABLETS NOCTE
     Route: 048
     Dates: start: 20220601
  10. SENNOSIDE B [Concomitant]
     Active Substance: SENNOSIDE B
     Indication: Drug therapy
     Dosage: 8 MG, 2 TABLETS NOCTE
     Route: 048
     Dates: start: 20220601
  11. OXYCODONE HYDROCHLORIDE [Concomitant]
     Active Substance: OXYCODONE HYDROCHLORIDE
     Indication: Drug therapy
     Dosage: 10 MG, 1X/DAY
     Route: 048
     Dates: start: 20220701
  12. NALOXONE HYDROCHLORIDE\OXYCODONE HYDROCHLORIDE [Concomitant]
     Active Substance: NALOXONE HYDROCHLORIDE\OXYCODONE HYDROCHLORIDE
     Indication: Drug therapy
     Dosage: 10 MG, 2X/DAY
     Route: 048
     Dates: start: 20220701
  13. ONDANSETRON [Concomitant]
     Active Substance: ONDANSETRON
     Indication: Prophylaxis
     Dosage: 8 MG, AS NEEDED
     Route: 060
     Dates: start: 20220714
  14. PANTOPRAZOLE [Concomitant]
     Active Substance: PANTOPRAZOLE
     Indication: Drug therapy
     Dosage: 40 MG, 1X/DAY
     Route: 048
     Dates: start: 20220714
  15. BUPRENORPHINE [Concomitant]
     Active Substance: BUPRENORPHINE
     Indication: Drug therapy
     Dosage: 400 UG, STAT
     Route: 060
     Dates: start: 20220727, end: 20220727

REACTIONS (1)
  - Abdominal pain [Unknown]

NARRATIVE: CASE EVENT DATE: 20220727
